FAERS Safety Report 5143420-2 (Version None)
Quarter: 2006Q4

REPORT INFORMATION
  Report Type: 
  Country: None (occurrence: None)
  Receive Date: 20061030
  Receipt Date: 20061013
  Transmission Date: 20070319
  Serious: Yes (Other)
  Sender: FDA-Public Use
  Company Number: 2006124395

PATIENT
  Age: 70 Year
  Sex: Male

DRUGS (1)
  1. ZYVOX [Suspect]
     Indication: PNEUMONIA STAPHYLOCOCCAL
     Dosage: 1200 MG, ORAL
     Route: 048
     Dates: start: 20060907, end: 20060917

REACTIONS (2)
  - HYPONATRAEMIA [None]
  - NAUSEA [None]
